FAERS Safety Report 5675167-8 (Version None)
Quarter: 2008Q1

REPORT INFORMATION
  Report Type: 
  Country: None (occurrence: None)
  Receive Date: 20080320
  Receipt Date: 20080311
  Transmission Date: 20080703
  Serious: Yes (Other)
  Sender: FDA-Public Use
  Company Number: DE-SANOFI-SYNTHELABO-A04200800046

PATIENT
  Sex: Male
  Weight: 104 kg

DRUGS (2)
  1. QUENSYL [Suspect]
     Indication: SJOGREN'S SYNDROME
     Dosage: UNK
     Route: 048
     Dates: start: 20070716, end: 20071204
  2. THYRONAJOD [Concomitant]
     Indication: GOITRE
     Dosage: UNK
     Route: 048
     Dates: start: 20070813

REACTIONS (2)
  - ASTHENIA [None]
  - MYASTHENIA GRAVIS [None]
